FAERS Safety Report 16656136 (Version 1)
Quarter: 2019Q3

REPORT INFORMATION
  Report Type: Spontaneous
  Country: FR (occurrence: FR)
  Receive Date: 20190801
  Receipt Date: 20190801
  Transmission Date: 20191004
  Serious: Yes (Hospitalization)
  Sender: FDA-Public Use
  Company Number: FR-TEVA-2019-FR-1086146

PATIENT
  Age: 83 Year
  Sex: Female
  Weight: 74 kg

DRUGS (16)
  1. ENTRESTO [Suspect]
     Active Substance: SACUBITRIL\VALSARTAN
     Indication: HYPERTENSION
     Dosage: 1 DOSAGE FORMS
     Route: 048
     Dates: start: 20190514, end: 20190527
  2. INSPRA [Suspect]
     Active Substance: EPLERENONE
     Indication: HYPERTENSION
     Dosage: 1 DOSAGE FORMS
     Route: 048
     Dates: start: 20190514, end: 20190525
  3. LASILIX [Concomitant]
     Active Substance: FUROSEMIDE
     Route: 042
     Dates: start: 20190513, end: 20190513
  4. ZOPICLONE [Concomitant]
     Active Substance: ZOPICLONE
     Dosage: 7.5 MILLIGRAM
     Route: 048
  5. ASPIRINE [Concomitant]
     Active Substance: ASPIRIN
     Dosage: 75 MILLIGRAM
     Route: 048
  6. BISOPROLOL (FUMARATE ACIDE DE) [Concomitant]
     Active Substance: BISOPROLOL FUMARATE
     Dosage: 15 MILLIGRAM
     Route: 048
  7. TARDYFERON 80 MG, COMPRIM? ENROB? [Concomitant]
     Active Substance: FERROUS SULFATE
     Dosage: 1 DOSAGE FORMS
     Route: 048
  8. ESOMEPRAZOLE. [Concomitant]
     Active Substance: ESOMEPRAZOLE MAGNESIUM
     Dosage: 1 DOSAGE FORMS
     Route: 048
  9. RISORDAN [Concomitant]
     Active Substance: ISOSORBIDE
     Route: 048
     Dates: start: 20190513, end: 20190513
  10. LASILIX SPECIAL 500 MG, COMPRIM? S?CABLE [Concomitant]
     Active Substance: FUROSEMIDE
     Dosage: DEGRESSIVE POSOLOGY TO THE ARRET
     Route: 048
     Dates: start: 20190514, end: 20190523
  11. RIVOTRIL [Concomitant]
     Active Substance: CLONAZEPAM
     Dosage: 5 GTT
     Route: 048
  12. AMLODIPINE [Concomitant]
     Active Substance: AMLODIPINE BESYLATE
     Dosage: 5 MILLIGRAM
     Route: 048
  13. ALLOPURINOL. [Suspect]
     Active Substance: ALLOPURINOL
     Indication: PRODUCT USED FOR UNKNOWN INDICATION
     Dosage: 300 MILLIGRAM
     Route: 048
     Dates: end: 20190525
  14. MONOPROST 50 MICROGRAMMES/ML, COLLYRE EN SOLUTION EN R?CIPIENT UNIDOSE [Concomitant]
     Active Substance: LATANOPROST
     Dosage: 1 GTT
     Route: 047
  15. FUROSEMIDE. [Concomitant]
     Active Substance: FUROSEMIDE
     Dosage: 40 MILLIGRAM
     Route: 048
  16. LANTUS [Concomitant]
     Active Substance: INSULIN GLARGINE
     Dosage: 16 IU
     Route: 058

REACTIONS (4)
  - Pruritus [Recovering/Resolving]
  - Rash scarlatiniform [Recovering/Resolving]
  - Rash [Recovering/Resolving]
  - Rash morbilliform [Recovering/Resolving]

NARRATIVE: CASE EVENT DATE: 20190523
